FAERS Safety Report 11470342 (Version 2)
Quarter: 2015Q3

REPORT INFORMATION
  Report Type: Spontaneous
  Country: US (occurrence: US)
  Receive Date: 20150903
  Receipt Date: 20150903
  Transmission Date: 20151125
  Serious: No
  Sender: FDA-Public Use
  Company Number: US-ELI_LILLY_AND_COMPANY-US201111008869

PATIENT
  Sex: Female

DRUGS (4)
  1. OTHER ANTIHYPERTENSIVES [Concomitant]
     Active Substance: UNSPECIFIED INGREDIENT
     Indication: HYPERTENSION
  2. LIPITOR [Concomitant]
     Active Substance: ATORVASTATIN CALCIUM
  3. CYMBALTA [Suspect]
     Active Substance: DULOXETINE HYDROCHLORIDE
     Indication: DEPRESSION
     Dosage: 60 MG, BID
     Dates: end: 201109
  4. CYMBALTA [Suspect]
     Active Substance: DULOXETINE HYDROCHLORIDE
     Dosage: 60 MG, BID

REACTIONS (11)
  - Cystitis [Unknown]
  - Crying [Unknown]
  - Irritability [Unknown]
  - Urinary incontinence [Unknown]
  - Apathy [Unknown]
  - Drug withdrawal syndrome [Unknown]
  - Tremor [Unknown]
  - Dizziness [Unknown]
  - Mental disorder [Unknown]
  - Decreased appetite [Unknown]
  - Abnormal behaviour [Unknown]
